FAERS Safety Report 8357155-6 (Version None)
Quarter: 2012Q2

REPORT INFORMATION
  Report Type: 
  Country: None (occurrence: None)
  Receive Date: 20120514
  Receipt Date: 20120504
  Transmission Date: 20120825
  Serious: Yes (Hospitalization)
  Sender: FDA-Public Use
  Company Number: US-ROCHE-1066199

PATIENT
  Age: 72 Year
  Sex: Female
  Weight: 57 kg

DRUGS (4)
  1. PACLITAXEL [Suspect]
     Indication: OVARIAN EPITHELIAL CANCER
     Dosage: OVER 1 HR ON DAYS 1,8 AND 15
     Route: 042
     Dates: start: 20110707
  2. CARBOPLATIN [Suspect]
     Indication: OVARIAN EPITHELIAL CANCER
     Dosage: ROUTE : IP,AUC 6 ON DAY 1
     Dates: start: 20110707
  3. AVASTIN [Suspect]
     Dosage: (CYCLES : 7-22), OVER 30-90 MIN ON DAY 1
     Route: 042
  4. AVASTIN [Suspect]
     Indication: OVARIAN EPITHELIAL CANCER
     Dosage: (CYCLE : 1-6) OVER 30-90 MIN ON DAY 1, BEGINNING WITH CYCLE 2
     Route: 042
     Dates: start: 20110707

REACTIONS (1)
  - VOLVULUS OF SMALL BOWEL [None]
